FAERS Safety Report 5075331-5 (Version None)
Quarter: 2006Q3

REPORT INFORMATION
  Report Type: 
  Country: None (occurrence: None)
  Receive Date: 20060804
  Receipt Date: 20060724
  Transmission Date: 20061208
  Serious: Yes (Other)
  Sender: FDA-Public Use
  Company Number: 2006091414

PATIENT
  Age: 56 Year
  Sex: Female

DRUGS (2)
  1. LYRICA [Suspect]
     Indication: PROCEDURAL PAIN
     Dosage: 150 MG (75 MG, 2 IN 1 D), ORAL
     Route: 048
     Dates: start: 20060721
  2. VOLTAREN DISPERS ^NOVARTIS^ (DICLOFENAC) [Concomitant]

REACTIONS (2)
  - GAIT DISTURBANCE [None]
  - INTRAOCULAR PRESSURE INCREASED [None]
